FAERS Safety Report 15855735 (Version 2)
Quarter: 2019Q2

REPORT INFORMATION
  Report Type: Spontaneous
  Country: JP (occurrence: JP)
  Receive Date: 20190122
  Receipt Date: 20190520
  Transmission Date: 20190711
  Serious: Yes (Other)
  Sender: FDA-Public Use
  Company Number: JP-GILEAD-2019-0384396

PATIENT
  Weight: 34 kg

DRUGS (2)
  1. HARVONI [Suspect]
     Active Substance: LEDIPASVIR\SOFOSBUVIR
     Indication: HEPATITIS C
     Dosage: UNK
     Route: 048
     Dates: start: 201703, end: 201707
  2. SUPACAL [Concomitant]
     Dosage: UNK
     Route: 048
     Dates: start: 2013

REACTIONS (91)
  - Hypoglycaemic unconsciousness [Unknown]
  - Low density lipoprotein increased [Unknown]
  - Blood cholesterol increased [Unknown]
  - Abdominal discomfort [Unknown]
  - Swelling [Unknown]
  - Collagen disorder [Unknown]
  - C-reactive protein abnormal [Unknown]
  - Abnormal sensation in eye [Unknown]
  - Oedema [Unknown]
  - Proteinuria [Unknown]
  - Large intestine polyp [Unknown]
  - Asthenia [Unknown]
  - Protein total [Unknown]
  - Eye colour change [Unknown]
  - Red blood cell count increased [Unknown]
  - Tachycardia [Unknown]
  - Neoplasm malignant [Unknown]
  - Cryoglobulinaemia [Unknown]
  - Albumin globulin ratio increased [Unknown]
  - Constipation [Unknown]
  - Abdominal pain [Unknown]
  - Alopecia [Unknown]
  - Tinnitus [Unknown]
  - Fall [Unknown]
  - Hepatomegaly [Unknown]
  - Neutrophil count increased [Unknown]
  - Facial wasting [Unknown]
  - Loss of consciousness [Unknown]
  - Hepatic cirrhosis [Unknown]
  - Carcinoembryonic antigen increased [Unknown]
  - Blood trypsin increased [Unknown]
  - Complement factor decreased [Unknown]
  - Viral load decreased [Unknown]
  - Pruritus generalised [Unknown]
  - Loss of personal independence in daily activities [Unknown]
  - Throat tightness [Unknown]
  - Eye disorder [Unknown]
  - Non-high-density lipoprotein cholesterol increased [Unknown]
  - Blood iron abnormal [Unknown]
  - Hypoglycaemia [Unknown]
  - Blood pressure diastolic increased [Unknown]
  - Dizziness [Unknown]
  - Hyperglycaemia [Unknown]
  - White blood cell count increased [Unknown]
  - Nausea [Unknown]
  - Unevaluable event [Unknown]
  - Blood pressure increased [Unknown]
  - Discomfort [Unknown]
  - Eye swelling [Unknown]
  - Condition aggravated [Unknown]
  - Abdominal discomfort [Unknown]
  - Swelling face [Unknown]
  - High density lipoprotein increased [Unknown]
  - Cardiac discomfort [Unknown]
  - Eye pain [Unknown]
  - Lacrimation increased [Unknown]
  - Bladder disorder [Unknown]
  - Capillary disorder [Unknown]
  - Colon cancer [Unknown]
  - Headache [Unknown]
  - Aspartate aminotransferase abnormal [Unknown]
  - Jaundice [Unknown]
  - Face oedema [Unknown]
  - Liver disorder [Unknown]
  - Malaise [Unknown]
  - Dyspnoea [Unknown]
  - Blood triglycerides abnormal [Unknown]
  - Dehydration [Unknown]
  - Palpitations [Unknown]
  - Asthenopia [Unknown]
  - Off label use [Unknown]
  - Amylase increased [Unknown]
  - Treatment noncompliance [Unknown]
  - Weight decreased [Unknown]
  - Physical deconditioning [Unknown]
  - Depressed mood [Unknown]
  - Pigmentation disorder [Unknown]
  - Decreased activity [Unknown]
  - Skin discolouration [Unknown]
  - Blood bilirubin abnormal [Unknown]
  - Blood albumin decreased [Unknown]
  - Globulins increased [Unknown]
  - Tumour marker decreased [Unknown]
  - Pruritus [Unknown]
  - Apathy [Unknown]
  - Blood glucose fluctuation [Unknown]
  - Cardiac disorder [Unknown]
  - Ocular icterus [Unknown]
  - Cyanosis [Unknown]
  - General symptom [Unknown]
  - Overdose [Unknown]

NARRATIVE: CASE EVENT DATE: 2018
